FAERS Safety Report 11872398 (Version 1)
Quarter: 2015Q4

REPORT INFORMATION
  Report Type: Spontaneous
  Country: US (occurrence: None)
  Receive Date: 20151224
  Receipt Date: 20151224
  Transmission Date: 20160305
  Serious: Yes (Hospitalization, Disabling, Other)
  Sender: FDA-Public Use
  Company Number: None

PATIENT
  Age: 60 Year
  Sex: Female
  Weight: 65.77 kg

DRUGS (14)
  1. LEVOTHYROXINE. [Concomitant]
     Active Substance: LEVOTHYROXINE
  2. CHLORPHENIMINE [Concomitant]
  3. CENTRUM MULT-VITAMIN [Concomitant]
  4. BRIMONIDINE 15% SOLN SANDOZ [Suspect]
     Active Substance: BRIMONIDINE TARTRATE
  5. PRAVASTATIN [Concomitant]
     Active Substance: PRAVASTATIN\PRAVASTATIN SODIUM
  6. IBUPROFIN [Concomitant]
  7. CALCIUM [Concomitant]
     Active Substance: CALCIUM
  8. TIMOLOL MALFATE 5% 5M SDA GREENSTONE [Suspect]
     Active Substance: TIMOLOL MALEATE
     Indication: GLAUCOMA
     Route: 047
     Dates: end: 20151209
  9. METFORMIN [Concomitant]
     Active Substance: METFORMIN HYDROCHLORIDE
  10. BENAZEPRIL [Concomitant]
     Active Substance: BENAZEPRIL HYDROCHLORIDE
  11. LIPITOR [Concomitant]
     Active Substance: ATORVASTATIN CALCIUM
  12. LATANOPROST. [Suspect]
     Active Substance: LATANOPROST
  13. ADVAIR DISKUS [Concomitant]
     Active Substance: FLUTICASONE PROPIONATE\SALMETEROL XINAFOATE
  14. LORATADINE. [Concomitant]
     Active Substance: LORATADINE

REACTIONS (4)
  - Dizziness [None]
  - Rash [None]
  - Nasal disorder [None]
  - Malaise [None]

NARRATIVE: CASE EVENT DATE: 2006
